FAERS Safety Report 4307132-7 (Version None)
Quarter: 2004Q1

REPORT INFORMATION
  Report Type: 
  Country: None (occurrence: None)
  Receive Date: 20040225
  Receipt Date: 20040216
  Transmission Date: 20041129
  Serious: Yes (Hospitalization)
  Sender: FDA-Public Use
  Company Number: JP-JNJFOC-20031201029

PATIENT
  Age: 38 Year
  Sex: Female

DRUGS (2)
  1. LEVOFLOXACIN [Suspect]
     Indication: PYELONEPHRITIS
     Dosage: 1000 MG, INTRAVENOUS
     Route: 042
     Dates: start: 20030420
  2. LEVOFLOXACIN [Suspect]
     Indication: URINARY TRACT INFECTION
     Dosage: 1000 MG, INTRAVENOUS
     Route: 042
     Dates: start: 20030420

REACTIONS (8)
  - AORTIC ANEURYSM [None]
  - AORTIC THROMBOSIS [None]
  - ARTERIAL THROMBOSIS [None]
  - INFECTION [None]
  - PALLOR [None]
  - RENAL ANEURYSM [None]
  - RENAL ARTERY THROMBOSIS [None]
  - RENAL NECROSIS [None]
